FAERS Safety Report 6397319-4 (Version None)
Quarter: 2009Q4

REPORT INFORMATION
  Report Type: 
  Country: None (occurrence: None)
  Receive Date: 20091012
  Receipt Date: 20090928
  Transmission Date: 20100525
  Serious: Yes (Hospitalization, Other)
  Sender: FDA-Public Use
  Company Number: GB-AVENTIS-200921204GDDC

PATIENT
  Age: 62 Year
  Sex: Female

DRUGS (2)
  1. GLIBENCLAMIDE [Suspect]
     Indication: TYPE 2 DIABETES MELLITUS
  2. METFORMIN HYDROCHLORIDE [Suspect]
     Indication: TYPE 2 DIABETES MELLITUS

REACTIONS (5)
  - ABDOMINAL PAIN [None]
  - ASCITES [None]
  - DIARRHOEA [None]
  - HEPATIC CIRRHOSIS [None]
  - VARICES OESOPHAGEAL [None]
